FAERS Safety Report 5376067-3 (Version None)
Quarter: 2007Q3

REPORT INFORMATION
  Report Type: 
  Country: None (occurrence: None)
  Receive Date: 20070702
  Receipt Date: 20070620
  Transmission Date: 20080115
  Serious: Yes (Other)
  Sender: FDA-Public Use
  Company Number: US-PURDUE-USA_2007_0027700

PATIENT
  Age: 55 Year
  Sex: Male
  Weight: 54 kg

DRUGS (2)
  1. OXYCONTIN [Suspect]
     Indication: BACK PAIN
     Dosage: UNK, SEE TEXT
  2. OXYIR [Concomitant]
     Indication: PAIN

REACTIONS (28)
  - ABDOMINAL PAIN [None]
  - ANOREXIA [None]
  - CRYING [None]
  - DEPRESSION [None]
  - DIARRHOEA [None]
  - DRUG ABUSER [None]
  - DRUG DEPENDENCE [None]
  - DRUG WITHDRAWAL SYNDROME [None]
  - FATIGUE [None]
  - FEELING COLD [None]
  - HAEMATEMESIS [None]
  - HYPERHIDROSIS [None]
  - HYPERTENSION [None]
  - INFLUENZA LIKE ILLNESS [None]
  - INSOMNIA [None]
  - INTRACRANIAL ANEURYSM [None]
  - LACRIMATION INCREASED [None]
  - MOOD ALTERED [None]
  - MUSCLE TIGHTNESS [None]
  - NAUSEA [None]
  - RESTLESSNESS [None]
  - RHINORRHOEA [None]
  - SCREAMING [None]
  - SNEEZING [None]
  - TREMOR [None]
  - VISION BLURRED [None]
  - WEIGHT DECREASED [None]
  - YAWNING [None]
